FAERS Safety Report 14999803 (Version 2)
Quarter: 2018Q3

REPORT INFORMATION
  Report Type: Spontaneous
  Country: FR (occurrence: FR)
  Receive Date: 20180612
  Receipt Date: 20180723
  Transmission Date: 20181010
  Serious: Yes (Death, Hospitalization)
  Sender: FDA-Public Use
  Company Number: FR-TEVA-2018-FR-905782

PATIENT
  Age: 42 Year
  Sex: Female

DRUGS (2)
  1. TYVERB 250 MG, COATED TABLETS [Suspect]
     Active Substance: LAPATINIB
     Indication: BREAST CANCER
     Dosage: 1250 MILLIGRAM DAILY;
     Route: 048
     Dates: start: 201711, end: 20180214
  2. TAMOXIFEN (CITRTATE DE) [Suspect]
     Active Substance: TAMOXIFEN CITRATE
     Indication: HORMONE THERAPY
     Dosage: 2 DOSAGE FORMS DAILY;
     Route: 048
     Dates: start: 201304

REACTIONS (3)
  - Drug ineffective [Fatal]
  - Metastasis [Fatal]
  - Colitis [Recovering/Resolving]

NARRATIVE: CASE EVENT DATE: 20180111
